FAERS Safety Report 25374124 (Version 1)
Quarter: 2025Q2

REPORT INFORMATION
  Report Type: Spontaneous
  Country: CH (occurrence: CH)
  Receive Date: 20250529
  Receipt Date: 20250529
  Transmission Date: 20250717
  Serious: Yes (Other)
  Sender: EMD SERONO INC
  Company Number: CH-Merck Healthcare KGaA-2025025790

PATIENT
  Age: 26 Year
  Sex: Female
  Weight: 104 kg

DRUGS (4)
  1. MAVENCLAD [Suspect]
     Active Substance: CLADRIBINE
     Indication: Multiple sclerosis
     Dates: start: 20210726, end: 20210730
  2. MAVENCLAD [Suspect]
     Active Substance: CLADRIBINE
     Dates: start: 20210823, end: 20210827
  3. MAVENCLAD [Suspect]
     Active Substance: CLADRIBINE
     Dates: start: 20220808, end: 20220812
  4. MAVENCLAD [Suspect]
     Active Substance: CLADRIBINE
     Dates: start: 20220908, end: 20220912

REACTIONS (3)
  - Foetal death [Recovered/Resolved]
  - Gestational diabetes [Unknown]
  - Maternal exposure before pregnancy [Recovered/Resolved]
